FAERS Safety Report 7176363-3 (Version None)
Quarter: 2010Q4

REPORT INFORMATION
  Report Type: 
  Country: None (occurrence: None)
  Receive Date: 20101220
  Receipt Date: 20101207
  Transmission Date: 20110411
  Serious: Yes (Death, Hospitalization)
  Sender: FDA-Public Use
  Company Number: JP-JNJFOC-20101200269

PATIENT
  Sex: Male
  Weight: 59 kg

DRUGS (12)
  1. REMICADE [Suspect]
     Indication: RHEUMATOID ARTHRITIS
     Route: 042
  2. REMICADE [Suspect]
     Route: 042
  3. REMICADE [Suspect]
     Dosage: RECEIVED 27 INFUSIONS
     Route: 042
  4. PREDONINE [Suspect]
     Indication: RHEUMATOID ARTHRITIS
     Route: 048
  5. RHEUMATREX [Suspect]
     Indication: RHEUMATOID ARTHRITIS
     Route: 048
  6. METHYLPREDNISOLONE [Concomitant]
  7. GABEXATE MESILATE [Concomitant]
  8. FOLIAMIN [Concomitant]
  9. TAKEPRON [Concomitant]
     Route: 048
  10. LOXONIN [Concomitant]
     Route: 048
  11. ONEALFA [Concomitant]
     Dosage: 0.5RG
     Route: 048
  12. MEVALOTIN [Concomitant]
     Route: 048

REACTIONS (7)
  - DISSEMINATED INTRAVASCULAR COAGULATION [None]
  - HEPATIC ENCEPHALOPATHY [None]
  - HEPATITIS FULMINANT [None]
  - HERPES SIMPLEX [None]
  - MULTI-ORGAN FAILURE [None]
  - RENAL FAILURE [None]
  - RESPIRATORY FAILURE [None]
